FAERS Safety Report 8426439-5 (Version None)
Quarter: 2012Q2

REPORT INFORMATION
  Report Type: 
  Country: None (occurrence: None)
  Receive Date: 20120611
  Receipt Date: 20120607
  Transmission Date: 20120825
  Serious: Yes (Other)
  Sender: FDA-Public Use
  Company Number: FI-PFIZER INC-2012136916

PATIENT
  Age: 52 Year
  Sex: Female

DRUGS (2)
  1. SUTENT [Suspect]
     Indication: METASTATIC RENAL CELL CARCINOMA
     Dosage: 50 MG, D1-28, CYCLIC
     Dates: start: 20080331, end: 20080630
  2. SUTENT [Suspect]
     Dosage: 37.5 (UNITS UNSPECIFIED) D1-28 CYCLIC
     Dates: start: 20080701, end: 20090907

REACTIONS (2)
  - HYPOTHYROIDISM [None]
  - MULTI-ORGAN FAILURE [None]
